FAERS Safety Report 5834789-1 (Version None)
Quarter: 2008Q3

REPORT INFORMATION
  Report Type: 
  Country: None (occurrence: None)
  Receive Date: 20080804
  Receipt Date: 20080721
  Transmission Date: 20090109
  Serious: Yes (Death, Hospitalization, Disabling)
  Sender: FDA-Public Use
  Company Number: 2008-02391

PATIENT
  Age: 55 Year
  Sex: Female
  Weight: 49.9 kg

DRUGS (27)
  1. VELCADE [Suspect]
     Indication: MULTIPLE MYELOMA
     Dosage: 1 MG/M2
     Dates: start: 20080513, end: 20080516
  2. ESCITALOPRAM OXALATE [Concomitant]
  3. KLONOPIN [Concomitant]
  4. DEXAMETHASONE TAB [Concomitant]
  5. DARBEPOETIN ALFA (DARBEPOETIN ALFA) [Concomitant]
  6. ZOMETA [Concomitant]
  7. BENADRYL (SODIUM CITRATE, AMMONIUM CHLORIDE, MENTHOL, DIPHENHYDRAMINE [Concomitant]
  8. DIFLUCAN [Concomitant]
  9. VALTREX [Concomitant]
  10. BACTRIM DS [Concomitant]
  11. COREG [Concomitant]
  12. VOLTAREN [Concomitant]
  13. KLONOPIN [Concomitant]
  14. POTASSIUM CHLORIDE [Concomitant]
  15. LOMOTIL [Concomitant]
  16. COMPAZINE [Concomitant]
  17. ZOFRAN [Concomitant]
  18. MEDROL [Concomitant]
  19. HYDROCORTISONE [Concomitant]
  20. LEVOXYL [Concomitant]
  21. TRIAMCINOLONE [Concomitant]
  22. VICODIN [Concomitant]
  23. PROTONIX [Concomitant]
  24. PROZAC [Concomitant]
  25. OXYCONTIN [Concomitant]
  26. GRANISETRON HYDROCHLORIDE (GRANISETRON HYDROCHLORIDE) [Concomitant]
  27. DOXIL [Concomitant]

REACTIONS (32)
  - ANXIETY [None]
  - APHASIA [None]
  - BACTERIAL INFECTION [None]
  - BLOOD PRESSURE DECREASED [None]
  - CATATONIA [None]
  - COMA [None]
  - COMMUNICATION DISORDER [None]
  - CONSTIPATION [None]
  - CULTURE URINE POSITIVE [None]
  - DECREASED APPETITE [None]
  - DEPRESSION [None]
  - DYSARTHRIA [None]
  - DYSPNOEA [None]
  - FATIGUE [None]
  - HALLUCINATION [None]
  - HYPERCALCAEMIA [None]
  - HYPERTENSION [None]
  - HYPOKINESIA [None]
  - INCOHERENT [None]
  - LETHARGY [None]
  - MENTAL STATUS CHANGES [None]
  - MOTOR DYSFUNCTION [None]
  - MULTIPLE MYELOMA [None]
  - MUSCLE SPASTICITY [None]
  - MUSCULAR WEAKNESS [None]
  - PAIN [None]
  - PALLOR [None]
  - PERIARTHRITIS [None]
  - PLATELET COUNT DECREASED [None]
  - RENAL FAILURE ACUTE [None]
  - SKIN TURGOR DECREASED [None]
  - TEARFULNESS [None]
